FAERS Safety Report 8581844-1 (Version None)
Quarter: 2012Q3

REPORT INFORMATION
  Report Type: 
  Country: None (occurrence: None)
  Receive Date: 20120809
  Receipt Date: 20120801
  Transmission Date: 20120928
  Serious: Yes (Other)
  Sender: FDA-Public Use
  Company Number: US-JNJFOC-20120802348

PATIENT
  Sex: Female
  Weight: 111.13 kg

DRUGS (6)
  1. FENTANYL [Suspect]
     Indication: COMPLEX REGIONAL PAIN SYNDROME
     Route: 062
  2. MORPHINE [Concomitant]
     Indication: BREAKTHROUGH PAIN
     Dosage: AS NEEDED
     Route: 048
  3. FENTANYL TRANSDERMAL SYSSTEM [Suspect]
     Indication: COMPLEX REGIONAL PAIN SYNDROME
     Route: 062
  4. FENTANYL [Suspect]
     Indication: THORACIC OUTLET SYNDROME
     Route: 062
  5. FENTANYL TRANSDERMAL SYSSTEM [Suspect]
     Indication: THORACIC OUTLET SYNDROME
     Route: 062
  6. INSULIN [Concomitant]
     Indication: DIABETES MELLITUS
     Route: 058

REACTIONS (3)
  - APPLICATION SITE PRURITUS [None]
  - COMPLEX REGIONAL PAIN SYNDROME [None]
  - CARPAL TUNNEL SYNDROME [None]
